FAERS Safety Report 24956164 (Version 2)
Quarter: 2025Q1

REPORT INFORMATION
  Report Type: Report from Study
  Country: TR (occurrence: TR)
  Receive Date: 20250211
  Receipt Date: 20250217
  Transmission Date: 20250409
  Serious: Yes (Other)
  Sender: BAUSCH AND LOMB
  Company Number: TR-MLMSERVICE-20250129-PI376701-00270-1

PATIENT
  Age: 11 Year
  Sex: Female

DRUGS (3)
  1. DEXAMETHASONE [Suspect]
     Active Substance: DEXAMETHASONE
     Indication: Acute lymphocytic leukaemia
     Route: 065
  2. PREDNISOLONE [Suspect]
     Active Substance: PREDNISOLONE
     Indication: Acute lymphocytic leukaemia
     Route: 065
  3. METHYLPREDNISOLONE [Suspect]
     Active Substance: METHYLPREDNISOLONE
     Indication: Acute lymphocytic leukaemia
     Route: 065

REACTIONS (1)
  - Osteonecrosis [Recovering/Resolving]
